FAERS Safety Report 9613223 (Version 1)
Quarter: 2013Q4

REPORT INFORMATION
  Report Type: Spontaneous
  Country: US (occurrence: US)
  Receive Date: 20131010
  Receipt Date: 20131010
  Transmission Date: 20140711
  Serious: Yes (Other)
  Sender: FDA-Public Use
  Company Number: US-GLAXOSMITHKLINE-A1044745A

PATIENT
  Sex: Female

DRUGS (3)
  1. VOTRIENT [Suspect]
     Indication: RENAL CANCER
     Dosage: 200MG TWICE PER DAY
     Route: 048
     Dates: start: 201306, end: 20131008
  2. THYROID MEDICATION [Concomitant]
  3. MEDICATION FOR HIGH BLOOD PRESSURE [Concomitant]

REACTIONS (1)
  - Metastasis [Not Recovered/Not Resolved]
